FAERS Safety Report 8149127 (Version 4)
Quarter: 2013Q3

REPORT INFORMATION
  Report Type: Spontaneous
  Country: US (occurrence: US)
  Receive Date: 20110922
  Receipt Date: 20130801
  Transmission Date: 20140515
  Serious: Yes (Hospitalization, Other)
  Sender: FDA-Public Use
  Company Number: US-ASTRAZENECA-2011SE04757

PATIENT
  Age: 78 Year
  Sex: Female
  Weight: 81.6 kg

DRUGS (24)
  1. SEROQUEL [Suspect]
     Indication: BRONCHITIS
     Route: 048
  2. SEROQUEL [Suspect]
     Indication: BIPOLAR II DISORDER
     Route: 048
  3. SEROQUEL [Suspect]
     Indication: BRONCHITIS
     Route: 048
  4. SEROQUEL [Suspect]
     Indication: BIPOLAR II DISORDER
     Route: 048
  5. SEROQUEL [Suspect]
     Indication: BRONCHITIS
     Route: 048
     Dates: start: 2005, end: 2013
  6. SEROQUEL [Suspect]
     Indication: BIPOLAR II DISORDER
     Route: 048
     Dates: start: 2005, end: 2013
  7. SEROQUEL [Suspect]
     Indication: BRONCHITIS
     Route: 048
     Dates: start: 201306
  8. SEROQUEL [Suspect]
     Indication: BIPOLAR II DISORDER
     Route: 048
     Dates: start: 201306
  9. SEROQUEL [Suspect]
     Indication: BRONCHITIS
     Route: 048
     Dates: start: 2013
  10. SEROQUEL [Suspect]
     Indication: BIPOLAR II DISORDER
     Route: 048
     Dates: start: 2013
  11. SEROQUEL [Suspect]
     Indication: BRONCHITIS
     Route: 048
     Dates: start: 201306, end: 20130722
  12. SEROQUEL [Suspect]
     Indication: BIPOLAR II DISORDER
     Route: 048
     Dates: start: 201306, end: 20130722
  13. AMLODIPINE [Concomitant]
     Indication: BLOOD PRESSURE ABNORMAL
  14. CLONIDINE [Concomitant]
     Indication: BLOOD PRESSURE ABNORMAL
  15. TRAZODONE [Concomitant]
  16. LEVOTHYROXINE [Concomitant]
     Indication: THYROID DISORDER
  17. AMITRIL [Concomitant]
  18. METOPROLOL [Concomitant]
  19. LITHIUM [Concomitant]
     Indication: BIPOLAR DISORDER
     Dates: end: 2013
  20. CARBONATE [Concomitant]
  21. ALPRAZOLAM [Concomitant]
     Indication: ANXIETY
  22. TERTHENAZINE [Concomitant]
  23. PHENAZINE [Concomitant]
     Indication: BIPOLAR DISORDER
     Dates: end: 2013
  24. METOPROLOL TARTRATE [Concomitant]
     Indication: BLOOD PRESSURE ABNORMAL
     Dosage: 50 TO 100 MG BID

REACTIONS (32)
  - Suicidal behaviour [Unknown]
  - Transient ischaemic attack [Unknown]
  - Urinary tract inflammation [Unknown]
  - Adverse event [Unknown]
  - Cystitis [Unknown]
  - Urinary retention [Unknown]
  - Urinary tract infection [Unknown]
  - Hypertension [Unknown]
  - Bladder pain [Not Recovered/Not Resolved]
  - Blood pressure fluctuation [Unknown]
  - Insomnia [Unknown]
  - Pneumonia [Unknown]
  - Malaise [Unknown]
  - Bronchitis [Unknown]
  - Memory impairment [Unknown]
  - Agitation [Unknown]
  - Vertigo [Unknown]
  - Metabolic disorder [Unknown]
  - Dry mouth [Unknown]
  - Asthenia [Unknown]
  - Lethargy [Unknown]
  - Somnolence [Unknown]
  - Fatigue [Unknown]
  - Constipation [Not Recovered/Not Resolved]
  - Weight increased [Unknown]
  - Pain in extremity [Unknown]
  - Pyrexia [Unknown]
  - Dyspnoea [Unknown]
  - Impaired driving ability [Unknown]
  - Tachyphrenia [Unknown]
  - Off label use [Unknown]
  - Drug dose omission [Unknown]
